FAERS Safety Report 12774569 (Version 1)
Quarter: 2016Q3

REPORT INFORMATION
  Report Type: Spontaneous
  Country: NL (occurrence: NL)
  Receive Date: 20160923
  Receipt Date: 20160923
  Transmission Date: 20161109
  Serious: Yes (Other)
  Sender: FDA-Public Use
  Company Number: NL-ASTRAZENECA-2016SE99488

PATIENT
  Sex: Female

DRUGS (2)
  1. ZOLADEX [Suspect]
     Active Substance: GOSERELIN ACETATE
     Dosage: 3,6 MG 1 X PER 4 WEEKS
     Route: 058
     Dates: start: 2015, end: 20160203
  2. LUCRIN [Concomitant]
     Active Substance: LEUPROLIDE ACETATE

REACTIONS (1)
  - Breast cancer recurrent [Unknown]
